FAERS Safety Report 7587984-8 (Version None)
Quarter: 2011Q3

REPORT INFORMATION
  Report Type: 
  Country: None (occurrence: None)
  Receive Date: 20110705
  Receipt Date: 20110629
  Transmission Date: 20111222
  Serious: Yes (Other)
  Sender: FDA-Public Use
  Company Number: US-PFIZER INC-2011145355

PATIENT
  Sex: Female
  Weight: 93.9 kg

DRUGS (3)
  1. DEPO-PROVERA [Suspect]
     Indication: OFF LABEL USE
     Dosage: UNK
     Dates: start: 20110501
  2. DEPO-PROVERA [Suspect]
     Indication: MENORRHAGIA
  3. ZOLOFT [Concomitant]
     Indication: ANXIETY
     Dosage: UNK, DAILY
     Route: 048

REACTIONS (7)
  - WEIGHT INCREASED [None]
  - IRRITABILITY [None]
  - PREMENSTRUAL SYNDROME [None]
  - CONDITION AGGRAVATED [None]
  - MOOD SWINGS [None]
  - AGGRESSION [None]
  - HYPERHIDROSIS [None]
